FAERS Safety Report 15831114 (Version 1)
Quarter: 2019Q1

REPORT INFORMATION
  Report Type: Report from Study
  Country: None (occurrence: US)
  Receive Date: 20190116
  Receipt Date: 20190116
  Transmission Date: 20190417
  Serious: Yes (Other)
  Sender: FDA-Public Use
  Company Number: US-ABBVIE-19K-163-2621383-00

PATIENT
  Sex: Male

DRUGS (1)
  1. HUMIRA [Suspect]
     Active Substance: ADALIMUMAB
     Indication: PSORIATIC ARTHROPATHY
     Dosage: CF PEN
     Route: 058

REACTIONS (5)
  - Suicidal ideation [Unknown]
  - Irritability [Unknown]
  - Testicular oedema [Unknown]
  - Testicular pain [Unknown]
  - Headache [Unknown]
